FAERS Safety Report 5973665-0 (Version None)
Quarter: 2008Q4

REPORT INFORMATION
  Report Type: 
  Country: None (occurrence: None)
  Receive Date: 20081201
  Receipt Date: 20081119
  Transmission Date: 20090506
  Serious: Yes (Hospitalization, Other)
  Sender: FDA-Public Use
  Company Number: US-ELI_LILLY_AND_COMPANY-US200810007373

PATIENT
  Age: 41 Year
  Sex: Male

DRUGS (15)
  1. ZYPREXA [Suspect]
     Indication: BIPOLAR I DISORDER
     Dosage: 15 MG, DAILY (1/D)
     Dates: start: 20070101
  2. ZYPREXA [Suspect]
     Dosage: 7.5 MG, UNK
     Dates: start: 20081016, end: 20081017
  3. PROZAC [Suspect]
     Dosage: 20 MG, DAILY (1/D)
  4. GEODON [Concomitant]
     Dates: start: 20081017
  5. LORTAB [Concomitant]
     Dosage: 10 MG, UNK
  6. LORTAB [Concomitant]
     Dosage: 40 MG, UNK
  7. CLONOPIN [Concomitant]
     Dosage: 6 MG, UNK
  8. ATIVAN [Concomitant]
     Dosage: 1 MG, 2/D
  9. RELAFEN [Concomitant]
     Dosage: 750 MG, 2/D
  10. ULTRACET [Concomitant]
     Dosage: 1 D/F, EVERY 4 HRS
  11. METHOTREXATE [Concomitant]
     Dosage: 12.5 MG, WEEKLY (1/W)
  12. LITHIUM CARBONATE [Concomitant]
     Dosage: 300 MG, 2/D
  13. PROTONIX [Concomitant]
     Dosage: 40 MG, DAILY (1/D)
  14. RESTORIL [Concomitant]
     Dosage: 30 MG, EACH EVENING
  15. VIAGRA [Concomitant]
     Dosage: 100 MG, AS NEEDED

REACTIONS (5)
  - CEREBROVASCULAR ACCIDENT [None]
  - HYPERCAPNIA [None]
  - MENTAL STATUS CHANGES [None]
  - RHABDOMYOLYSIS [None]
  - ROAD TRAFFIC ACCIDENT [None]
